FAERS Safety Report 26093499 (Version 1)
Quarter: 2025Q4

REPORT INFORMATION
  Report Type: Spontaneous
  Country: GB (occurrence: GB)
  Receive Date: 20251126
  Receipt Date: 20251126
  Transmission Date: 20260118
  Serious: Yes (Other)
  Sender: ORGANON
  Company Number: GB-ORGANON-O2509GBR002103

PATIENT
  Age: 50 Year
  Sex: Male

DRUGS (5)
  1. MOMETASONE [Suspect]
     Active Substance: MOMETASONE
     Indication: Chronic rhinosinusitis with nasal polyps
     Dosage: TWO SPRAYS IN EACH NOSTRIL (SN: 10622406454760)
     Dates: start: 20250821, end: 20250917
  2. MOMETASONE [Suspect]
     Active Substance: MOMETASONE
     Dosage: 2 UNK, (PKG. ID=PA7043)
  3. OMEPRAZOLE [Concomitant]
     Active Substance: OMEPRAZOLE
     Indication: Chronic rhinosinusitis with nasal polyps
     Dosage: UNK
     Dates: start: 20250710, end: 20250716
  4. PREDNISOLONE [Concomitant]
     Active Substance: PREDNISOLONE
     Indication: Chronic rhinosinusitis with nasal polyps
     Dosage: UNK
     Dates: start: 20250710, end: 20250716
  5. BETNESOL [Concomitant]
     Indication: Chronic rhinosinusitis with nasal polyps
     Dosage: UNK
     Dates: start: 20250710, end: 20250820

REACTIONS (3)
  - Wheezing [Unknown]
  - Urticaria [Recovered/Resolved]
  - Dyspnoea [Not Recovered/Not Resolved]

NARRATIVE: CASE EVENT DATE: 20250902
